FAERS Safety Report 6247358-9 (Version None)
Quarter: 2009Q2

REPORT INFORMATION
  Report Type: 
  Country: None (occurrence: None)
  Receive Date: 20090626
  Receipt Date: 20090618
  Transmission Date: 20091009
  Serious: Yes (Hospitalization)
  Sender: FDA-Public Use
  Company Number: B0574283A

PATIENT
  Sex: Female

DRUGS (15)
  1. LAMICTAL [Suspect]
     Indication: DEPRESSION
     Dosage: 25MG PER DAY
     Route: 048
     Dates: start: 20090420, end: 20090430
  2. LUVOX [Concomitant]
     Dosage: 50MG PER DAY
     Route: 048
     Dates: start: 20090430
  3. RESLIN [Concomitant]
     Route: 048
     Dates: start: 20090430
  4. ACINON [Concomitant]
     Route: 048
     Dates: start: 20090430
  5. ACINON [Concomitant]
     Dosage: 150MG PER DAY
     Route: 048
  6. PURSENNID [Concomitant]
     Route: 048
     Dates: start: 20090430
  7. LAXOBERON [Concomitant]
     Route: 048
     Dates: start: 20090430
  8. LENDORMIN [Concomitant]
     Route: 048
     Dates: start: 20090430
  9. SEROQUEL [Concomitant]
     Dosage: 100MG PER DAY
     Route: 048
     Dates: start: 20090430
  10. ASPIRIN [Concomitant]
     Route: 048
     Dates: start: 20090430
  11. LIPITOR [Concomitant]
     Route: 048
     Dates: start: 20090430
  12. HERBESSER [Concomitant]
     Route: 048
     Dates: start: 20090430
  13. MICARDIS [Concomitant]
     Route: 048
     Dates: start: 20090430
  14. CHINESE MEDICINE [Concomitant]
     Dosage: 7.5G PER DAY
     Route: 048
  15. EPADEL [Concomitant]
     Dosage: 1800MG PER DAY
     Route: 048
     Dates: start: 20090430

REACTIONS (13)
  - C-REACTIVE PROTEIN INCREASED [None]
  - CHILLS [None]
  - CONJUNCTIVAL HYPERAEMIA [None]
  - ERYTHEMA [None]
  - EYELID OEDEMA [None]
  - HEAD DISCOMFORT [None]
  - LYMPHOCYTIC INFILTRATION [None]
  - MALAISE [None]
  - OEDEMA [None]
  - OROPHARYNGEAL PAIN [None]
  - PRURITUS [None]
  - PYREXIA [None]
  - URTICARIA [None]
